FAERS Safety Report 8080351 (Version 7)
Quarter: 2012Q4

REPORT INFORMATION
  Report Type: 
  Country: JP (occurrence: JP)
  Receive Date: 20110808
  Receipt Date: 20121008
  Transmission Date: 20130627
  Serious: Yes (Hospitalization, Other)
  Sender: FDA-Public Use
  Company Number: PHHY2011JP55862

PATIENT
  Age: 50 Year
  Sex: Female
  Weight: 77 kg

DRUGS (12)
  1. TEGRETOL [Suspect]
     Indication: MANIA
     Dosage: 300 mg, daily (100 mg three times daily)
     Route: 048
     Dates: start: 20100315, end: 20100329
  2. BISACODYL [Suspect]
     Indication: CONSTIPATION
     Dosage: UNK UKN, UNK
     Dates: start: 20100326, end: 20100326
  3. RISPERIDONE [Suspect]
     Indication: INSOMNIA
     Dosage: UNK UKN, UNK
     Route: 048
     Dates: start: 20100312, end: 20100312
  4. JZOLOFT [Suspect]
     Indication: DEPRESSION
     Dosage: 50 mg, daily
     Route: 048
     Dates: start: 20100310
  5. ROHYPNOL [Suspect]
     Indication: INSOMNIA
     Dosage: 2 mg, daily
     Route: 048
     Dates: start: 20100310, end: 20100331
  6. UNSPECIFIED INGREDIENT [Suspect]
     Indication: UPPER RESPIRATORY TRACT INFLAMMATION
     Dosage: 30 mg, daily
     Route: 048
     Dates: start: 20100311, end: 20100315
  7. UNSPECIFIED [Suspect]
     Dosage: 30 mg, daily
     Route: 048
     Dates: start: 20100329, end: 20100331
  8. CLARITH [Suspect]
     Indication: UPPER RESPIRATORY TRACT INFLAMMATION
     Dosage: 400 mg, daily
     Route: 048
     Dates: start: 20100311, end: 20100315
  9. CLARITH [Suspect]
     Dosage: 400 mg, daily
     Route: 048
     Dates: start: 20100329, end: 20100329
  10. UNSPECIFIED INGREDIENT [Suspect]
     Indication: PHARYNGITIS
     Dosage: UNK UKN, UNK
     Dates: start: 20100311, end: 20100311
  11. SENNOSIDE [Concomitant]
     Indication: CONSTIPATION
     Dosage: UNK UKN, UNK
     Dates: start: 20100326, end: 20100326
  12. UNSPECIFIED INGREDIENT [Concomitant]
     Indication: DYSPEPSIA
     Dosage: UNK UKN, ONCE/SINGLE
     Dates: start: 20100326

REACTIONS (9)
  - Hyperthermia [Not Recovered/Not Resolved]
  - Urinary tract infection [Not Recovered/Not Resolved]
  - Blood lactate dehydrogenase increased [Unknown]
  - Blood alkaline phosphatase increased [Unknown]
  - C-reactive protein increased [Not Recovered/Not Resolved]
  - White blood cell count decreased [Not Recovered/Not Resolved]
  - Alanine aminotransferase increased [Recovered/Resolved]
  - Gamma-glutamyltransferase increased [Not Recovered/Not Resolved]
  - Headache [Not Recovered/Not Resolved]
